FAERS Safety Report 15121231 (Version 1)
Quarter: 2018Q3

REPORT INFORMATION
  Report Type: Spontaneous
  Country: US (occurrence: US)
  Receive Date: 20180709
  Receipt Date: 20180709
  Transmission Date: 20181010
  Serious: Yes (Other)
  Sender: FDA-Public Use
  Company Number: US-BAYER-2018-126811

PATIENT
  Sex: Male

DRUGS (1)
  1. ALKA?SELTZER EFFERVESCENT COLD [Suspect]
     Active Substance: ACETAMINOPHEN\CHLORPHENIRAMINE\DEXTROMETHORPHAN\PHENYLEPHRINE
     Dosage: UNK
     Route: 065

REACTIONS (4)
  - Wheezing [None]
  - Throat irritation [None]
  - Anaphylactic shock [None]
  - Pharyngeal oedema [None]

NARRATIVE: CASE EVENT DATE: 20180702
